FAERS Safety Report 7053481-1 (Version None)
Quarter: 2010Q4

REPORT INFORMATION
  Report Type: 
  Country: None (occurrence: None)
  Receive Date: 20101020
  Receipt Date: 20101012
  Transmission Date: 20110411
  Serious: No
  Sender: FDA-Public Use
  Company Number: US-PFIZER INC-2010125062

PATIENT
  Sex: Female

DRUGS (7)
  1. CHANTIX [Suspect]
     Indication: SMOKING CESSATION THERAPY
     Dosage: 0.5 MG, 1X/DAY
     Route: 048
     Dates: start: 20100918
  2. CHANTIX [Suspect]
     Dosage: 1 MG, 2X/DAY
     Route: 048
  3. POTASSIUM [Concomitant]
     Dosage: UNK, 10 MG DAILY
     Route: 048
  4. BUMETANIDE [Concomitant]
     Indication: DIURETIC THERAPY
     Dosage: UNK, 2 MG DAILY
     Route: 048
  5. CRESTOR [Concomitant]
     Indication: HYPERCHOLESTEROLAEMIA
     Dosage: UNK, 5 MG DAILY
     Route: 048
  6. LISINOPRIL [Concomitant]
     Indication: HYPERTENSION
     Dosage: UNK, 40 MG DAILY
  7. NORVASC [Concomitant]
     Indication: HYPERTENSION
     Dosage: UNK, 5 MG DAILY

REACTIONS (5)
  - DISSOCIATION [None]
  - IRRITABILITY [None]
  - MUSCULOSKELETAL DISORDER [None]
  - PAIN IN EXTREMITY [None]
  - SCREAMING [None]
